FAERS Safety Report 15506439 (Version 1)
Quarter: 2018Q4

REPORT INFORMATION
  Report Type: Other
  Country: CA (occurrence: CA)
  Receive Date: 20181016
  Receipt Date: 20181016
  Transmission Date: 20190205
  Serious: Yes (Other)
  Sender: FDA-Public Use
  Company Number: CA-DUCHESNAY INC.-2056080

PATIENT
  Sex: Female

DRUGS (12)
  1. DEXPANTHENOL/ERGOCALCIFEROL/FOLIC ACID/NICOTINAMIDE/RIBOFLAVIN/THIAMIN [Suspect]
     Active Substance: VITAMINS
  2. METFORMIN [Suspect]
     Active Substance: METFORMIN HYDROCHLORIDE
  3. INSULIN [Suspect]
     Active Substance: INSULIN NOS
  4. NIFEDIPINE. [Suspect]
     Active Substance: NIFEDIPINE
  5. METHYLDOPA. [Suspect]
     Active Substance: METHYLDOPA
  6. DICLEGIS [Suspect]
     Active Substance: DOXYLAMINE SUCCINATE\PYRIDOXINE HYDROCHLORIDE
     Indication: PROPHYLAXIS
     Route: 048
  7. ACETYLSALICYLIC ACID [Suspect]
     Active Substance: ASPIRIN
  8. NIFEDIPINE. [Suspect]
     Active Substance: NIFEDIPINE
  9. NIFEDIPINE. [Suspect]
     Active Substance: NIFEDIPINE
  10. SILDENAFIL. [Suspect]
     Active Substance: SILDENAFIL
  11. SILDENAFIL. [Suspect]
     Active Substance: SILDENAFIL
  12. CHLORHEXIDINE [Suspect]
     Active Substance: CHLORHEXIDINE

REACTIONS (1)
  - Premature delivery [Unknown]
